FAERS Safety Report 5865209-9 (Version None)
Quarter: 2008Q3

REPORT INFORMATION
  Report Type: 
  Country: None (occurrence: None)
  Receive Date: 20080829
  Receipt Date: 20080811
  Transmission Date: 20090109
  Serious: Yes (Other)
  Sender: FDA-Public Use
  Company Number: B0531112A

PATIENT
  Age: 39 Year
  Sex: Female
  Weight: 93 kg

DRUGS (2)
  1. TYVERB [Suspect]
     Indication: BREAST CANCER METASTATIC
     Dosage: 1250MG PER DAY
     Route: 048
     Dates: start: 20080201, end: 20080507
  2. XELODA [Suspect]
     Indication: BREAST CANCER METASTATIC
     Dosage: 2500MG PER DAY
     Route: 048
     Dates: start: 20080201

REACTIONS (2)
  - BLOOD BILIRUBIN INCREASED [None]
  - JAUNDICE [None]
